FAERS Safety Report 8522083-X (Version None)
Quarter: 2012Q3

REPORT INFORMATION
  Report Type: 
  Country: None (occurrence: None)
  Receive Date: 20120719
  Receipt Date: 20120717
  Transmission Date: 20120928
  Serious: Yes (Hospitalization, Other)
  Sender: FDA-Public Use
  Company Number: PH-PFIZER INC-2012133137

PATIENT
  Age: 25 Year
  Sex: Male

DRUGS (3)
  1. DILANTIN [Suspect]
     Indication: EPILEPSY
     Dosage: 100 MG, UNK
  2. TOPAMAX [Concomitant]
     Indication: CONVULSION
     Dosage: UNK
  3. SUPRANEURON [Concomitant]
     Dosage: UNK

REACTIONS (2)
  - ANTICONVULSANT DRUG LEVEL DECREASED [None]
  - CONVULSION [None]
